FAERS Safety Report 6651885-X (Version None)
Quarter: 2010Q1

REPORT INFORMATION
  Report Type: 
  Country: None (occurrence: None)
  Receive Date: 20100325
  Receipt Date: 20100315
  Transmission Date: 20100710
  Serious: Yes (Other)
  Sender: FDA-Public Use
  Company Number: PHHY2009CA37167

PATIENT
  Sex: Male

DRUGS (13)
  1. TELBIVUDINE [Suspect]
     Indication: HEPATITIS B
     Dosage: 600 MG, DAILY
     Route: 048
     Dates: start: 20071126, end: 20080915
  2. PREDNISONE TAB [Concomitant]
     Dosage: UNK
     Dates: start: 20071201
  3. PLAQUENIL [Concomitant]
     Dosage: UNK
     Dates: start: 20071201
  4. GLICLAZIDE [Concomitant]
     Dosage: UNK
     Dates: start: 19970101
  5. METFORMIN HCL [Concomitant]
     Dosage: UNK
     Dates: start: 19970101
  6. HYDROXYZINE [Concomitant]
  7. DIDRONEL [Concomitant]
  8. PREVACID [Concomitant]
  9. SIMVASTATIN [Concomitant]
  10. NAPROSYN [Concomitant]
  11. LISINOPRIL [Concomitant]
  12. ASPIRIN [Concomitant]
  13. TYLENOL-500 [Concomitant]

REACTIONS (11)
  - AREFLEXIA [None]
  - BLOOD CREATINE PHOSPHOKINASE INCREASED [None]
  - CHROMOSOME ANALYSIS ABNORMAL [None]
  - DECREASED VIBRATORY SENSE [None]
  - DRUG TOXICITY [None]
  - HYPOAESTHESIA [None]
  - NEUROPATHY PERIPHERAL [None]
  - PARAESTHESIA [None]
  - PERIPHERAL SENSORIMOTOR NEUROPATHY [None]
  - POLYNEUROPATHY [None]
  - SKIN DISORDER [None]
